FAERS Safety Report 9773792 (Version 3)
Quarter: 2014Q1

REPORT INFORMATION
  Report Type: Report from Study
  Country: BR (occurrence: BR)
  Receive Date: 20131219
  Receipt Date: 20140303
  Transmission Date: 20141002
  Serious: Yes (Disabling)
  Sender: FDA-Public Use
  Company Number: BR-ROCHE-1256365

PATIENT
  Sex: Female

DRUGS (8)
  1. ACTEMRA [Suspect]
     Indication: RHEUMATOID ARTHRITIS
     Route: 065
  2. NIMESULIDE [Concomitant]
  3. CYCLOSPORINE [Concomitant]
     Route: 065
     Dates: start: 20130722
  4. ORENCIA [Concomitant]
  5. HUMIRA [Concomitant]
  6. ARAVA [Concomitant]
  7. METHOTREXATE [Concomitant]
  8. FOLIC ACID [Concomitant]

REACTIONS (5)
  - Hypokinesia [Not Recovered/Not Resolved]
  - Drug ineffective [Unknown]
  - Abasia [Not Recovered/Not Resolved]
  - Blood disorder [Unknown]
  - Pain [Unknown]
